FAERS Safety Report 8166258-0 (Version None)
Quarter: 2012Q1

REPORT INFORMATION
  Report Type: 
  Country: None (occurrence: None)
  Receive Date: 20120227
  Receipt Date: 20110518
  Transmission Date: 20120608
  Serious: No
  Sender: FDA-Public Use
  Company Number: US-MYLANLABS-2011S1010513

PATIENT
  Age: 44 Year
  Sex: Female

DRUGS (4)
  1. AMNESTEEM [Suspect]
     Indication: ACNE
     Route: 048
     Dates: start: 20110201, end: 20110401
  2. IBUPROFEN (ADVIL) [Concomitant]
  3. CLARAVIS [Suspect]
     Indication: ACNE
     Route: 048
     Dates: start: 20101201, end: 20110101
  4. CLARAVIS [Suspect]
     Route: 048
     Dates: start: 20110101, end: 20110201

REACTIONS (3)
  - ANXIETY [None]
  - DEPRESSION [None]
  - AGGRESSION [None]
